FAERS Safety Report 26076518 (Version 1)
Quarter: 2025Q4

REPORT INFORMATION
  Report Type: Spontaneous
  Country: CN (occurrence: CN)
  Receive Date: 20251121
  Receipt Date: 20251121
  Transmission Date: 20260118
  Serious: Yes (Other)
  Sender: PFIZER
  Company Number: CN-PFIZER INC-PV202500135774

PATIENT
  Age: 16 Year
  Sex: Male
  Weight: 45 kg

DRUGS (4)
  1. CYTARABINE [Suspect]
     Active Substance: CYTARABINE
     Indication: T-cell type acute leukaemia
     Dosage: 50 MG, 1X/DAY
     Route: 041
     Dates: start: 20250928, end: 20251003
  2. LEUCOVORIN CALCIUM [Suspect]
     Active Substance: LEUCOVORIN CALCIUM
     Indication: T-cell type acute leukaemia
     Dosage: 100 MG, 3X/DAY
     Route: 041
     Dates: start: 20251005, end: 20251005
  3. METHOTREXATE [Suspect]
     Active Substance: METHOTREXATE
     Indication: T-cell type acute leukaemia
     Dosage: 10 MG, 1X/DAY
     Route: 041
     Dates: start: 20250928, end: 20250928
  4. SODIUM CHLORIDE [Concomitant]
     Active Substance: SODIUM CHLORIDE
     Indication: Vehicle solution use
     Dosage: 250 ML, 1X/DAY
     Route: 041
     Dates: start: 20250928, end: 20251003

REACTIONS (3)
  - Oropharyngeal erythema [Recovering/Resolving]
  - Laryngeal pain [Recovering/Resolving]
  - Eczema [Unknown]

NARRATIVE: CASE EVENT DATE: 20251004
